FAERS Safety Report 6942899-0 (Version None)
Quarter: 2010Q3

REPORT INFORMATION
  Report Type: 
  Country: None (occurrence: None)
  Receive Date: 20100826
  Receipt Date: 20100806
  Transmission Date: 20110219
  Serious: Yes (Other)
  Sender: FDA-Public Use
  Company Number: US-ROCHE-722252

PATIENT
  Age: 74 Year
  Sex: Female

DRUGS (3)
  1. TRASTUZUMAB [Suspect]
     Route: 041
  2. DOCETAXEL [Suspect]
     Route: 042
  3. CARBOPLATIN [Suspect]
     Route: 042

REACTIONS (1)
  - RECALL PHENOMENON [None]
